FAERS Safety Report 24612022 (Version 2)
Quarter: 2024Q4

REPORT INFORMATION
  Report Type: Spontaneous
  Country: CO (occurrence: CO)
  Receive Date: 20241113
  Receipt Date: 20241210
  Transmission Date: 20250115
  Serious: Yes (Other)
  Sender: ALEXION PHARMACEUTICALS
  Company Number: CO-ASTRAZENECA-202410SAM014186CO

PATIENT
  Age: 70 Year
  Weight: 60 kg

DRUGS (10)
  1. IMFINZI [Suspect]
     Active Substance: DURVALUMAB
     Indication: Malignant neoplasm of unknown primary site
     Dosage: 600 MILLIGRAM, Q2W
  2. IMFINZI [Suspect]
     Active Substance: DURVALUMAB
     Dosage: 600 MILLIGRAM, Q2W
     Route: 041
  3. IMFINZI [Suspect]
     Active Substance: DURVALUMAB
     Dosage: 600 MILLIGRAM, Q2W
  4. IMFINZI [Suspect]
     Active Substance: DURVALUMAB
     Dosage: 600 MILLIGRAM, Q2W
     Route: 041
  5. IMFINZI [Suspect]
     Active Substance: DURVALUMAB
     Dosage: 600 MILLIGRAM, Q2W
  6. IMFINZI [Suspect]
     Active Substance: DURVALUMAB
     Dosage: 600 MILLIGRAM, Q2W
     Route: 041
  7. IMFINZI [Suspect]
     Active Substance: DURVALUMAB
     Dosage: 600 MILLIGRAM, Q2W
  8. IMFINZI [Suspect]
     Active Substance: DURVALUMAB
     Dosage: 600 MILLIGRAM, Q2W
     Route: 041
  9. APIXABAN [Concomitant]
     Active Substance: APIXABAN
     Dosage: UNK
     Route: 065
  10. APIXABAN [Concomitant]
     Active Substance: APIXABAN
     Dosage: UNK
     Route: 065

REACTIONS (4)
  - Cerebrovascular accident [Unknown]
  - Cerebellar infarction [Unknown]
  - Ischaemic stroke [Unknown]
  - Leukoencephalopathy [Unknown]
